FAERS Safety Report 18096150 (Version 2)
Quarter: 2020Q3

REPORT INFORMATION
  Report Type: Spontaneous
  Country: CN (occurrence: CN)
  Receive Date: 20200731
  Receipt Date: 20200810
  Transmission Date: 20201103
  Serious: Yes (Other)
  Sender: FDA-Public Use
  Company Number: CN-ROCHE-2650068

PATIENT
  Age: 67 Year
  Sex: Male

DRUGS (7)
  1. XELODA [Suspect]
     Active Substance: CAPECITABINE
     Indication: ADENOCARCINOMA
     Route: 065
     Dates: start: 20150122
  2. TEGAFUR GIMERACIL AND OTERACIL POTASSIUM [Concomitant]
     Active Substance: GIMERACIL\OTERACIL\TEGAFUR
     Dates: start: 20150604, end: 20190124
  3. IRINOTECAN [Concomitant]
     Active Substance: IRINOTECAN
     Dates: start: 20140403, end: 20150104
  4. AVASTIN [Suspect]
     Active Substance: BEVACIZUMAB
     Route: 065
     Dates: start: 20150604
  5. XELODA [Suspect]
     Active Substance: CAPECITABINE
     Indication: RECTAL ULCER
     Route: 065
     Dates: start: 20140403, end: 20150104
  6. AVASTIN [Suspect]
     Active Substance: BEVACIZUMAB
     Indication: RECTAL ULCER
     Route: 065
     Dates: start: 20140403, end: 20150104
  7. AVASTIN [Suspect]
     Active Substance: BEVACIZUMAB
     Indication: ADENOCARCINOMA
     Route: 065
     Dates: start: 20150122, end: 20150514

REACTIONS (10)
  - Ileus [Unknown]
  - Tumour exudation [Unknown]
  - Myelosuppression [Unknown]
  - Anastomotic ulcer [Unknown]
  - Intestinal dilatation [Unknown]
  - Flatulence [Unknown]
  - Myocardial infarction [Unknown]
  - Melaena [Unknown]
  - Abdominal mass [Unknown]
  - Chest X-ray abnormal [Unknown]
